FAERS Safety Report 6825995-8 (Version None)
Quarter: 2010Q3

REPORT INFORMATION
  Report Type: 
  Country: None (occurrence: None)
  Receive Date: 20100709
  Receipt Date: 20100628
  Transmission Date: 20110219
  Serious: Yes (Hospitalization)
  Sender: FDA-Public Use
  Company Number: ES-BAXTER-2010BH017139

PATIENT
  Age: 18 Year
  Sex: Female
  Weight: 50 kg

DRUGS (1)
  1. GAMMAGARD LIQUID [Suspect]
     Indication: JUVENILE ARTHRITIS
     Route: 042
     Dates: start: 20100510, end: 20100512

REACTIONS (1)
  - HAEMOLYTIC ANAEMIA [None]
